FAERS Safety Report 5025229-3 (Version None)
Quarter: 2006Q2

REPORT INFORMATION
  Report Type: 
  Country: None (occurrence: None)
  Receive Date: 20060426
  Receipt Date: 20060126
  Transmission Date: 20061013
  Serious: Yes (Other)
  Sender: FDA-Public Use
  Company Number: 2006015642

PATIENT
  Age: 76 Year
  Sex: Female
  Weight: 63.5036 kg

DRUGS (4)
  1. LYRICA [Suspect]
     Indication: NEURALGIA
     Dosage: 150 MG (50 MG,3 IN 1 D)
     Dates: start: 20051201
  2. GABAPENTIN [Suspect]
     Indication: NEURALGIA
     Dosage: (3 IN D)
     Dates: start: 20050301, end: 20051001
  3. VYTORIN [Concomitant]
  4. LEVOTHYROXINE SODIUM [Concomitant]

REACTIONS (1)
  - PAIN IN EXTREMITY [None]
